FAERS Safety Report 7251208-1 (Version None)
Quarter: 2011Q1

REPORT INFORMATION
  Report Type: 
  Country: None (occurrence: None)
  Receive Date: 20110128
  Receipt Date: 20110121
  Transmission Date: 20110831
  Serious: Yes (Other)
  Sender: FDA-Public Use
  Company Number: US-US-EMD SERONO, INC.-7038033

PATIENT
  Sex: Female

DRUGS (1)
  1. REBIF [Suspect]
     Indication: MULTIPLE SCLEROSIS
     Dates: start: 20090112, end: 20110105

REACTIONS (6)
  - TOOTH ABSCESS [None]
  - VOMITING [None]
  - MUSCLE SPASMS [None]
  - PNEUMONIA [None]
  - BLOOD POTASSIUM DECREASED [None]
  - NAUSEA [None]
